FAERS Safety Report 5134071-4 (Version None)
Quarter: 2006Q4

REPORT INFORMATION
  Report Type: 
  Country: None (occurrence: None)
  Receive Date: 20061019
  Receipt Date: 20061006
  Transmission Date: 20070319
  Serious: Yes (Other)
  Sender: FDA-Public Use
  Company Number: 2006124388

PATIENT
  Age: 61 Year
  Sex: Female

DRUGS (3)
  1. LYRICA [Suspect]
     Indication: PAIN IN EXTREMITY
     Dosage: 150 MG (75 MG, 2 IN 1 D)
     Dates: start: 20060901, end: 20061002
  2. BISOPROLOL FUMARATE [Concomitant]
  3. FLUINDIONE [Concomitant]

REACTIONS (7)
  - ANGINA PECTORIS [None]
  - CARDIOVASCULAR DISORDER [None]
  - HEART RATE INCREASED [None]
  - INADEQUATE ANALGESIA [None]
  - INSOMNIA [None]
  - NERVOUSNESS [None]
  - PAIN [None]
